FAERS Safety Report 4759572-X (Version None)
Quarter: 2005Q3

REPORT INFORMATION
  Report Type: 
  Country: None (occurrence: None)
  Receive Date: 20050901
  Receipt Date: 20050310
  Transmission Date: 20060218
  Serious: Yes (Life-Threatening, Hospitalization)
  Sender: FDA-Public Use
  Company Number: US-MERCK-0503USA02080

PATIENT
  Age: 60 Year
  Sex: Male
  Weight: 68 kg

DRUGS (38)
  1. ESTAZOLAM [Concomitant]
     Route: 065
  2. VIOXX [Suspect]
     Indication: ARTHRITIS
     Route: 048
     Dates: start: 19990101, end: 20040901
  3. ACETAMINOPHEN [Concomitant]
     Route: 065
  4. AMBIEN [Concomitant]
     Route: 065
  5. AMOXICILLIN [Concomitant]
     Route: 065
  6. ANDRODERM [Concomitant]
     Route: 065
  7. AUGMENTIN '125' [Concomitant]
     Route: 065
  8. BEXTRA [Concomitant]
     Route: 065
  9. CARISOPRODOL [Concomitant]
     Route: 065
  10. CEFADROXIL [Concomitant]
     Route: 065
  11. CIPROFLOXACIN HCL [Concomitant]
     Route: 065
  12. CYCLOBENZAPRINE(WEST POINT PHARMA) [Concomitant]
     Route: 065
  13. FLURAZEPAM HYDROCHLORIDE [Concomitant]
     Route: 065
  14. FOSAMAX [Concomitant]
     Route: 065
  15. HYDROCODONE BITARTRATE [Concomitant]
     Route: 065
  16. ISOSORBIDE [Concomitant]
     Route: 065
  17. LEVAQUIN [Concomitant]
     Route: 065
  18. MACROBID [Concomitant]
     Route: 065
  19. MERCAPTOPURINE [Concomitant]
     Route: 065
  20. METRONIDAZOLE [Concomitant]
     Route: 065
  21. NYSTATIN [Concomitant]
     Route: 065
  22. PREDNISONA SOD. FOS [Concomitant]
     Route: 065
  23. DEMEROL [Concomitant]
     Route: 065
  24. DETROL [Concomitant]
     Route: 065
  25. DIAZEPAM [Concomitant]
     Route: 065
  26. DIFLUCAN [Concomitant]
     Route: 065
  27. OXYCODONE [Concomitant]
     Route: 065
  28. PLAVIX [Concomitant]
     Route: 065
  29. PREVACID [Concomitant]
     Route: 065
  30. PURINETHOL [Concomitant]
     Route: 065
  31. REMICADE [Concomitant]
     Route: 065
  32. SULFAMETHOXAZOLE [Concomitant]
     Route: 065
  33. URISPAS [Concomitant]
     Route: 065
  34. URSODIOL [Concomitant]
     Route: 065
  35. VIAGRA [Concomitant]
     Route: 065
  36. VICODIN [Concomitant]
     Route: 065
  37. ZYVOX [Concomitant]
     Route: 065
  38. CELEBREX [Concomitant]
     Route: 065
     Dates: start: 19990101, end: 20000101

REACTIONS (36)
  - ABDOMINAL PAIN [None]
  - ACUTE CORONARY SYNDROME [None]
  - ADENOMA BENIGN [None]
  - ADVERSE DRUG REACTION [None]
  - ANAEMIA [None]
  - ANGINA UNSTABLE [None]
  - ARTHRALGIA [None]
  - BACK PAIN [None]
  - BILIARY DILATATION [None]
  - CHEST WALL PAIN [None]
  - CHOLECYSTITIS CHRONIC [None]
  - DIARRHOEA [None]
  - EMOTIONAL DISTRESS [None]
  - EROSIVE DUODENITIS [None]
  - ESCHERICHIA URINARY TRACT INFECTION [None]
  - GASTRIC HAEMORRHAGE [None]
  - GASTROOESOPHAGEAL REFLUX DISEASE [None]
  - HEPATITIS ACUTE [None]
  - HYDRONEPHROSIS [None]
  - INFLAMMATORY BOWEL DISEASE [None]
  - IRON DEFICIENCY ANAEMIA [None]
  - JAUNDICE CHOLESTATIC [None]
  - MYOCARDIAL INFARCTION [None]
  - NAUSEA [None]
  - NEPHROLITHIASIS [None]
  - OESOPHAGEAL SPASM [None]
  - RENAL FAILURE ACUTE [None]
  - RETROPERITONEAL HAEMATOMA [None]
  - SEPSIS [None]
  - SYSTEMIC INFLAMMATORY RESPONSE SYNDROME [None]
  - THROMBOCYTOPENIA [None]
  - ULCER [None]
  - URINARY TRACT INFECTION [None]
  - UROSEPSIS [None]
  - VENTRICULAR DYSFUNCTION [None]
  - VOMITING [None]
